FAERS Safety Report 5959359-6 (Version None)
Quarter: 2008Q4

REPORT INFORMATION
  Report Type: 
  Country: None (occurrence: None)
  Receive Date: 20081119
  Receipt Date: 20081119
  Transmission Date: 20090506
  Serious: Yes (Other)
  Sender: FDA-Public Use
  Company Number: None

PATIENT
  Age: 16 Year
  Sex: Male
  Weight: 113.3993 kg

DRUGS (2)
  1. ABILIFY [Suspect]
     Indication: ANXIETY
     Dosage: 5MG 2X DAY BUCCAL
     Route: 002
  2. ABILIFY [Suspect]
     Indication: ASPERGER'S DISORDER
     Dosage: 5MG 2X DAY BUCCAL
     Route: 002

REACTIONS (3)
  - BLOOD GLUCOSE INCREASED [None]
  - INCREASED APPETITE [None]
  - WEIGHT INCREASED [None]
